FAERS Safety Report 25300528 (Version 2)
Quarter: 2025Q2

REPORT INFORMATION
  Report Type: Spontaneous
  Country: AR (occurrence: AR)
  Receive Date: 20250512
  Receipt Date: 20250527
  Transmission Date: 20250717
  Serious: No
  Sender: PFIZER
  Company Number: AR-PFIZER INC-202500096326

PATIENT
  Age: 7 Year
  Sex: Female

DRUGS (1)
  1. GENOTROPIN [Suspect]
     Active Substance: SOMATROPIN
     Indication: Foetal growth restriction
     Dates: start: 20240303

REACTIONS (4)
  - Injection site pain [Unknown]
  - Off label use [Unknown]
  - Device physical property issue [Unknown]
  - Patient-device incompatibility [Unknown]
